FAERS Safety Report 6730765-5 (Version None)
Quarter: 2010Q2

REPORT INFORMATION
  Report Type: 
  Country: None (occurrence: None)
  Receive Date: 20100514
  Receipt Date: 20100428
  Transmission Date: 20101027
  Serious: Yes (Death, Life-Threatening, Hospitalization)
  Sender: FDA-Public Use
  Company Number: 2010000838

PATIENT
  Age: 70 Year
  Sex: Female

DRUGS (9)
  1. ERLOTINIB (ERLOTINIB) (TABLET) (ERLOTINIB) [Suspect]
     Indication: MYELODYSPLASTIC SYNDROME
     Dosage: (150 MG), ORAL
     Route: 048
     Dates: start: 20100202, end: 20100228
  2. TYLENOL (PARACETAMOL) [Concomitant]
  3. ALBUTEROL [Concomitant]
  4. DIGOXIN [Concomitant]
  5. METOPROLOL (METOPROLOL) [Concomitant]
  6. COMPAZINE [Concomitant]
  7. CARAFATE [Concomitant]
  8. NAPROSYN [Concomitant]
  9. DECITABINE (DECITABINE) [Concomitant]

REACTIONS (3)
  - CEREBRAL HAEMORRHAGE [None]
  - HEADACHE [None]
  - NERVOUS SYSTEM DISORDER [None]
